FAERS Safety Report 4907690-5 (Version None)
Quarter: 2006Q1

REPORT INFORMATION
  Report Type: 
  Country: None (occurrence: None)
  Receive Date: 20060210
  Receipt Date: 20040614
  Transmission Date: 20060701
  Serious: Yes (Hospitalization, Other)
  Sender: FDA-Public Use
  Company Number: AT-ABBOTT-04P-009-0263911-00

PATIENT
  Sex: Male
  Weight: 97 kg

DRUGS (2)
  1. HUMIRA [Suspect]
     Indication: RHEUMATOID ARTHRITIS
     Route: 058
     Dates: start: 20040309
  2. HUMIRA [Suspect]
     Route: 058
     Dates: start: 20040519

REACTIONS (2)
  - PERITONSILLAR ABSCESS [None]
  - RENAL FAILURE [None]
